FAERS Safety Report 13835523 (Version 1)
Quarter: 2017Q3

REPORT INFORMATION
  Report Type: Spontaneous
  Country: FR (occurrence: FR)
  Receive Date: 20170804
  Receipt Date: 20170804
  Transmission Date: 20171127
  Serious: Yes (Hospitalization)
  Sender: FDA-Public Use
  Company Number: FR-TEVA-792953ROM

PATIENT
  Age: 56 Year
  Sex: Female

DRUGS (17)
  1. METHOTREXATE (METHOTREXATE SODIUM) [Suspect]
     Active Substance: METHOTREXATE SODIUM
     Dosage: 5 MG/M2 DAILY;
     Route: 042
     Dates: start: 20170706, end: 20170706
  2. METHOTREXATE (METHOTREXATE SODIUM) [Suspect]
     Active Substance: METHOTREXATE SODIUM
     Dosage: 5 MG/M2 DAILY;
     Route: 042
     Dates: start: 20170703, end: 20170703
  3. FLUDARABINE TEVA 25 MG/ML [Suspect]
     Active Substance: FLUDARABINE PHOSPHATE
     Indication: BONE MARROW CONDITIONING REGIMEN
     Route: 042
     Dates: start: 20170625, end: 20170627
  4. FEXOFENADINE [Concomitant]
     Active Substance: FEXOFENADINE\FEXOFENADINE HYDROCHLORIDE
     Dosage: 3 DOSAGE FORMS DAILY;
  5. KARDEGIC [Concomitant]
     Active Substance: ASPIRIN LYSINE
     Dosage: 1 DOSAGE FORMS DAILY;
  6. METHOTREXATE (METHOTREXATE SODIUM) [Suspect]
     Active Substance: METHOTREXATE SODIUM
     Dosage: 5 MG/M2 DAILY;
     Route: 042
     Dates: start: 20170711, end: 20170711
  7. ENDOXAN [Suspect]
     Active Substance: CYCLOPHOSPHAMIDE
     Indication: BONE MARROW CONDITIONING REGIMEN
     Dosage: 1 MG/KG DAILY; MODIFIED RITALLO RFC CONDITIONING PROTOCOL
     Route: 042
     Dates: start: 20170625, end: 20170627
  8. METHYLPREDNISOLONE MYLAN [Suspect]
     Active Substance: METHYLPREDNISOLONE
     Indication: BONE MARROW CONDITIONING REGIMEN
     Dosage: 1 MG/KG DAILY; MODIFIED RITALLO RFC CONDITIONING PROTOCOL
     Route: 042
     Dates: start: 20170627, end: 20170628
  9. ATORVASTATINE 10 MG [Concomitant]
     Active Substance: ATORVASTATIN
     Dosage: 1 DOSAGE FORMS DAILY; USUAL TREATMENT
  10. MABTHERA [Suspect]
     Active Substance: RITUXIMAB
     Indication: BONE MARROW CONDITIONING REGIMEN
     Dosage: 1000 MG/M2 DAILY;
     Route: 042
     Dates: start: 20170624, end: 20170708
  11. POLARAMINE [Suspect]
     Active Substance: DEXCHLORPHENIRAMINE MALEATE
     Indication: BONE MARROW CONDITIONING REGIMEN
     Dosage: 5 MILLIGRAM DAILY; MODIFIED RITALLO RFC CONDITIONING PROTOCOL
     Route: 042
     Dates: start: 20170727, end: 20170728
  12. INEXIUM 20 MG [Concomitant]
     Active Substance: ESOMEPRAZOLE
     Dosage: 1 DOSAGE FORMS DAILY; USUAL TREATMENT TAKEN IN THE EVENING
  13. SEROPLEX 10 MG [Concomitant]
     Active Substance: ESCITALOPRAM OXALATE
     Dosage: 1 DOSAGE FORMS DAILY; USUAL TREATMENT
  14. THYMOGLOBULIN [Suspect]
     Active Substance: LAPINE T-LYMPHOCYTE IMMUNE GLOBULIN
     Indication: PROPHYLAXIS AGAINST TRANSPLANT REJECTION
     Dosage: 2.5 MG/KG DAILY;
     Route: 042
     Dates: start: 20170627, end: 20170628
  15. SANDIMMUN 50 MG/ML [Suspect]
     Active Substance: CYCLOSPORINE
     Indication: PROPHYLAXIS AGAINST TRANSPLANT REJECTION
     Dosage: 250 MG/KG DAILY;
     Route: 042
     Dates: start: 20170626, end: 20170703
  16. METHOTREXATE (METHOTREXATE SODIUM) [Suspect]
     Active Substance: METHOTREXATE SODIUM
     Indication: PROPHYLAXIS AGAINST TRANSPLANT REJECTION
     Dosage: 5 MG/M2 DAILY;
     Route: 042
     Dates: start: 20170701, end: 20170701
  17. MESNA EG 100 MG/ML [Suspect]
     Active Substance: MESNA
     Indication: BONE MARROW CONDITIONING REGIMEN
     Dosage: 250 MG/M2 DAILY; MODIFIED RITALLO RFC CONDITIONING PROTOCOL
     Route: 042
     Dates: start: 20170625, end: 20170627

REACTIONS (3)
  - Bone marrow failure [Not Recovered/Not Resolved]
  - Acute kidney injury [Recovered/Resolved]
  - Thrombotic microangiopathy [Not Recovered/Not Resolved]

NARRATIVE: CASE EVENT DATE: 20170628
